FAERS Safety Report 17286097 (Version 1)
Quarter: 2020Q1

REPORT INFORMATION
  Report Type: Report from Study
  Country: NL (occurrence: NL)
  Receive Date: 20200118
  Receipt Date: 20200118
  Transmission Date: 20200409
  Serious: Yes (Other)
  Sender: FDA-Public Use
  Company Number: NL-ACCORD-169913

PATIENT
  Age: 74 Year
  Sex: Female

DRUGS (6)
  1. METHOTREXATE. [Suspect]
     Active Substance: METHOTREXATE
     Indication: RHEUMATOID ARTHRITIS
     Dosage: 15MG, 1X/W
     Dates: start: 20140409, end: 20140701
  2. PREDNISOLONE. [Concomitant]
     Active Substance: PREDNISOLONE
     Dosage: 7.5MG, 1X/D
     Dates: start: 20140326, end: 20140701
  3. DENOSUMAB [Concomitant]
     Active Substance: DENOSUMAB
     Dosage: 60MG, 2X/J
     Dates: start: 20140101, end: 20150101
  4. FOLIC ACID. [Concomitant]
     Active Substance: FOLIC ACID
     Dosage: 5MG, 1X/W
     Dates: start: 20140409, end: 20140701
  5. OMEPRAZOLE. [Concomitant]
     Active Substance: OMEPRAZOLE
     Dosage: 20MG, 1X/D
  6. CALCI CHEW D3 [Concomitant]
     Active Substance: CALCIUM CARBONATE\CHOLECALCIFEROL
     Dosage: 500/MG/IE, 1X/D

REACTIONS (3)
  - Nausea [Unknown]
  - Malaise [Unknown]
  - Depressed mood [Unknown]

NARRATIVE: CASE EVENT DATE: 20140601
